FAERS Safety Report 24280589 (Version 1)
Quarter: 2024Q3

REPORT INFORMATION
  Report Type: Report from Study
  Country: CL (occurrence: CL)
  Receive Date: 20240904
  Receipt Date: 20240904
  Transmission Date: 20241016
  Serious: Yes (Other)
  Sender: ROCHE
  Company Number: CL-ROCHE-10000069710

PATIENT
  Age: 49 Year
  Sex: Female
  Weight: 75.0 kg

DRUGS (6)
  1. OCRELIZUMAB [Suspect]
     Active Substance: OCRELIZUMAB
     Indication: Multiple sclerosis
     Route: 042
     Dates: start: 2021
  2. LEVOTHYROXINE SODIUM [Concomitant]
     Active Substance: LEVOTHYROXINE SODIUM
     Dosage: DOSE AND FREQUENCY WERE NOT REPORTED
     Dates: start: 1993
  3. LOSARTAN [Concomitant]
     Active Substance: LOSARTAN\LOSARTAN POTASSIUM
     Dosage: DOSE AND FREQUENCY WERE NOT REPORTED
     Dates: start: 2023
  4. BISOPROLOL [Concomitant]
     Active Substance: BISOPROLOL\BISOPROLOL FUMARATE
     Dosage: DOSE AND FREQUENCY WERE NOT REPORTED
     Dates: start: 2023
  5. VENLAFAXINE [Concomitant]
     Active Substance: VENLAFAXINE HYDROCHLORIDE
     Dosage: DOSE AND FREQUENCY WERE NOT REPORTED
     Dates: start: 2021
  6. QUETIAPINE [Concomitant]
     Active Substance: QUETIAPINE
     Dosage: DOSE AND FREQUENCY WERE NOT REPORTED
     Dates: start: 2023

REACTIONS (6)
  - Paraplegia [Not Recovered/Not Resolved]
  - Pyelonephritis [Not Recovered/Not Resolved]
  - Blood test abnormal [Not Recovered/Not Resolved]
  - Urinary tract infection [Not Recovered/Not Resolved]
  - Pneumonia [Not Recovered/Not Resolved]
  - Urine analysis abnormal [Not Recovered/Not Resolved]

NARRATIVE: CASE EVENT DATE: 20230401
